FAERS Safety Report 7225036-7 (Version None)
Quarter: 2011Q1

REPORT INFORMATION
  Report Type: 
  Country: None (occurrence: None)
  Receive Date: 20110113
  Receipt Date: 20110107
  Transmission Date: 20110831
  Serious: Yes (Life-Threatening, Hospitalization, Other)
  Sender: FDA-Public Use
  Company Number: US-AMGEN-QUU431277

PATIENT

DRUGS (12)
  1. NPLATE [Suspect]
     Dates: start: 20090610, end: 20100719
  2. PREDNISONE [Concomitant]
     Dosage: UNK UNK, UNK
     Dates: start: 20060101
  3. PROMACTA [Concomitant]
  4. NPLATE [Suspect]
     Indication: IDIOPATHIC THROMBOCYTOPENIC PURPURA
     Dosage: 8 A?G/KG, QWK
     Route: 058
     Dates: start: 20090610, end: 20100719
  5. ELTROMBOPAG [Concomitant]
     Dosage: 75 MG, UNK
     Dates: start: 20100701
  6. ACETAMINOPHEN [Concomitant]
     Dosage: 1000 MG, PRN
     Route: 048
  7. ATORVASTATIN CALCIUM [Concomitant]
     Dosage: UNK UNK, QD
     Route: 048
  8. HEPARIN SODIUM [Concomitant]
     Dosage: 5000 IU, QD
     Dates: start: 20100726
  9. MULTI-VITAMINS [Concomitant]
     Dosage: UNK UNK, QD
     Route: 048
  10. IMMUNOGLOBULINS [Concomitant]
     Dosage: UNK UNK, UNK
     Route: 042
     Dates: start: 20090401, end: 20090424
  11. METOPROLOL [Concomitant]
     Dosage: 200 MG, BID
     Route: 048
  12. RITUXIMAB [Concomitant]

REACTIONS (9)
  - PLATELET COUNT DECREASED [None]
  - CEREBROVASCULAR ACCIDENT [None]
  - IDIOPATHIC THROMBOCYTOPENIC PURPURA [None]
  - ATELECTASIS [None]
  - VENTRICULAR HYPERTROPHY [None]
  - PNEUMONITIS [None]
  - PULMONARY THROMBOSIS [None]
  - LEFT ATRIAL DILATATION [None]
  - PULMONARY EMBOLISM [None]
